FAERS Safety Report 10142388 (Version 2)
Quarter: 2014Q2

REPORT INFORMATION
  Report Type: Report from Study
  Country: PL (occurrence: PL)
  Receive Date: 20140430
  Receipt Date: 20140430
  Transmission Date: 20141212
  Serious: Yes (Other)
  Sender: FDA-Public Use
  Company Number: PL-ROCHE-1233017

PATIENT
  Age: 32 Year
  Sex: Female
  Weight: 80 kg

DRUGS (5)
  1. PEG-INTERFERON ALFA 2A [Suspect]
     Indication: CHRONIC HEPATITIS C
     Route: 058
     Dates: start: 20130205, end: 20140103
  2. PEG-INTERFERON ALFA 2A [Suspect]
     Dosage: DOSE REDUCE
     Route: 065
     Dates: start: 20130304
  3. PEG-INTERFERON ALFA 2A [Suspect]
     Route: 065
     Dates: start: 20130408, end: 20130726
  4. RIBAVIRIN [Suspect]
     Indication: CHRONIC HEPATITIS C
     Route: 048
     Dates: start: 20130205, end: 20140109
  5. RIBAVIRIN [Suspect]
     Route: 048
     Dates: start: 20130805, end: 20130916

REACTIONS (8)
  - Granulocytopenia [Recovered/Resolved]
  - Leukopenia [Recovered/Resolved]
  - Influenza like illness [Recovered/Resolved]
  - Weight decreased [Recovered/Resolved]
  - Headache [Recovered/Resolved]
  - Anaemia [Recovered/Resolved]
  - Alopecia [Recovered/Resolved]
  - Asthenia [Recovered/Resolved]
